FAERS Safety Report 25888328 (Version 1)
Quarter: 2025Q4

REPORT INFORMATION
  Report Type: Spontaneous
  Country: EU (occurrence: EU)
  Receive Date: 20251007
  Receipt Date: 20251007
  Transmission Date: 20260117
  Serious: Yes (Hospitalization)
  Sender: AUROBINDO
  Company Number: EU-AFSSAPS-RN2025000896

PATIENT
  Age: 84 Year
  Sex: Female

DRUGS (3)
  1. FLUCONAZOLE [Suspect]
     Active Substance: FLUCONAZOLE
     Indication: Urinary tract candidiasis
     Dosage: 400 MILLIGRAM, ONCE A DAY
     Route: 048
     Dates: start: 20250905, end: 20250913
  2. PREDNISONE [Suspect]
     Active Substance: PREDNISONE
     Indication: Adrenal insufficiency
     Dosage: 15 MILLIGRAM, ONCE A DAY
     Route: 048
     Dates: start: 20250820
  3. CHOLECALCIFEROL [Suspect]
     Active Substance: CHOLECALCIFEROL
     Indication: Folate deficiency
     Dosage: 1 DOSAGE FORM (1 AMPOULE EVERY 28 DAYS)
     Route: 048
     Dates: start: 20250821

REACTIONS (1)
  - Urticaria [Recovered/Resolved]

NARRATIVE: CASE EVENT DATE: 20250912
